FAERS Safety Report 26051483 (Version 1)
Quarter: 2025Q4

REPORT INFORMATION
  Report Type: Report from Study
  Country: US (occurrence: US)
  Receive Date: 20251117
  Receipt Date: 20251117
  Transmission Date: 20260117
  Serious: Yes (Other)
  Sender: ABBVIE
  Company Number: US-ABBVIE-6544831

PATIENT
  Sex: Female

DRUGS (1)
  1. CREON [Suspect]
     Active Substance: PANCRELIPASE AMYLASE\PANCRELIPASE LIPASE\PANCRELIPASE PROTEASE
     Indication: Product used for unknown indication
     Route: 048

REACTIONS (8)
  - Multiple organ dysfunction syndrome [Unknown]
  - Visual impairment [Unknown]
  - Feeling abnormal [Unknown]
  - Limb injury [Unknown]
  - Memory impairment [Unknown]
  - Hiccups [Unknown]
  - Pancreatic disorder [Unknown]
  - Malaise [Unknown]
